FAERS Safety Report 5139882-7 (Version None)
Quarter: 2006Q4

REPORT INFORMATION
  Report Type: 
  Country: None (occurrence: None)
  Receive Date: 20061025
  Receipt Date: 20061025
  Transmission Date: 20070319
  Serious: Yes (Other)
  Sender: FDA-Public Use
  Company Number: None

PATIENT
  Age: 53 Year
  Sex: Male
  Weight: 81.6 kg

DRUGS (6)
  1. DIPYRIDAMOLE [Suspect]
  2. LISINOPRIL [Concomitant]
  3. SIMVASTATIN [Concomitant]
  4. OMEPRAZOLE [Concomitant]
  5. LORAZEPAM [Concomitant]
  6. ASPIRIN / DIPYRIDAMOLE [Concomitant]

REACTIONS (3)
  - DIZZINESS [None]
  - HEADACHE [None]
  - PALPITATIONS [None]
